FAERS Safety Report 22260001 (Version 2)
Quarter: 2023Q2

REPORT INFORMATION
  Report Type: Spontaneous
  Country: BR (occurrence: BR)
  Receive Date: 20230427
  Receipt Date: 20230602
  Transmission Date: 20230721
  Serious: Yes (Other)
  Sender: FDA-Public Use
  Company Number: BR-DSJP-DSE-2023-116159

PATIENT
  Age: 77 Year
  Sex: Female
  Weight: 64 kg

DRUGS (9)
  1. EDOXABAN TOSYLATE [Suspect]
     Active Substance: EDOXABAN TOSYLATE
     Indication: Anticoagulant therapy
     Dosage: 60 MG, QD
     Route: 065
  2. BENICAR HCT [Suspect]
     Active Substance: HYDROCHLOROTHIAZIDE\OLMESARTAN MEDOXOMIL
     Indication: Product used for unknown indication
     Dosage: 20 + 12.5 MG
     Route: 065
     Dates: start: 2020
  3. FUROSEMIDE [Suspect]
     Active Substance: FUROSEMIDE
     Indication: Anticoagulant therapy
     Dosage: 40 MG, BID
     Route: 065
     Dates: end: 2020
  4. NEBIVOLOL [Suspect]
     Active Substance: NEBIVOLOL
     Indication: Anticoagulant therapy
     Dosage: 5 MG HALF TABLET A DAY
     Route: 065
  5. HIDROSMIN [Suspect]
     Active Substance: HIDROSMIN
     Indication: Anticoagulant therapy
     Dosage: 200 MG, BID
     Route: 065
  6. LEVOTHYROXINE [Concomitant]
     Active Substance: LEVOTHYROXINE
     Indication: Product used for unknown indication
     Dosage: 100 UG, QD
     Route: 065
  7. PANTOPRAZOLE [Concomitant]
     Active Substance: PANTOPRAZOLE
     Indication: Product used for unknown indication
     Dosage: 40 MG, QD
     Route: 065
  8. VALSARTAN [Concomitant]
     Active Substance: VALSARTAN
     Indication: Product used for unknown indication
     Dosage: 160 MG, QD
     Route: 065
     Dates: end: 2020
  9. CLORTALIDONE [Concomitant]
     Indication: Product used for unknown indication
     Dosage: 25 MG, QD
     Route: 065

REACTIONS (4)
  - Pulmonary hypertension [Unknown]
  - Arrhythmia [Unknown]
  - Cardiac failure [Unknown]
  - Atrial enlargement [Unknown]

NARRATIVE: CASE EVENT DATE: 20190101
